FAERS Safety Report 18315112 (Version 1)
Quarter: 2020Q3

REPORT INFORMATION
  Report Type: Spontaneous
  Country: US (occurrence: US)
  Receive Date: 20200926
  Receipt Date: 20200926
  Transmission Date: 20201103
  Serious: No
  Sender: FDA-Public Use
  Company Number: US-SA-2020SA261088

PATIENT

DRUGS (3)
  1. ALLEGRA [Concomitant]
     Active Substance: FEXOFENADINE HYDROCHLORIDE
     Dosage: UNK
  2. XYZAL ALLERGY 24HR [Suspect]
     Active Substance: LEVOCETIRIZINE DIHYDROCHLORIDE
     Dosage: 3 DF, ONE IN THE MORNING AND TWO AT NIGHT
  3. XYZAL ALLERGY 24HR [Suspect]
     Active Substance: LEVOCETIRIZINE DIHYDROCHLORIDE
     Indication: OFF LABEL USE
     Dosage: 1 DF, BID

REACTIONS (10)
  - Hypoaesthesia [Unknown]
  - Paraesthesia [Unknown]
  - Dry mouth [Unknown]
  - Nausea [Unknown]
  - Rhinorrhoea [Unknown]
  - Cluster headache [Unknown]
  - Somnolence [Unknown]
  - Pain in extremity [Unknown]
  - Diarrhoea [Unknown]
  - Fatigue [Unknown]
